FAERS Safety Report 8773245 (Version 5)
Quarter: 2013Q2

REPORT INFORMATION
  Report Type: Spontaneous
  Country: US (occurrence: US)
  Receive Date: 20120907
  Receipt Date: 20130412
  Transmission Date: 20140414
  Serious: Yes (Hospitalization, Other)
  Sender: FDA-Public Use
  Company Number: US-009507513-1111USA02191

PATIENT
  Sex: Female

DRUGS (3)
  1. FOSAMAX [Suspect]
     Indication: OSTEOPOROSIS
     Dosage: 70 MG, QW
     Route: 048
     Dates: start: 199510, end: 200912
  2. ALENDRONATE SODIUM [Suspect]
     Indication: OSTEOPOROSIS
     Dosage: 70 MG, QW
     Route: 048
     Dates: start: 20080706, end: 20081204
  3. FOSAMAX [Suspect]
     Indication: OSTEOPOROSIS
     Dosage: 70 MG, QW
     Route: 048
     Dates: start: 20100325

REACTIONS (35)
  - Femur fracture [Unknown]
  - Open reduction of fracture [Unknown]
  - Device failure [Unknown]
  - Traumatic arthritis [Unknown]
  - Haemorrhagic anaemia [Recovering/Resolving]
  - Packed red blood cell transfusion [Recovering/Resolving]
  - Medical device removal [Unknown]
  - Osteonecrosis [Unknown]
  - Fall [Unknown]
  - Hip arthroplasty [Unknown]
  - Hip arthroplasty [Unknown]
  - Adverse event [Unknown]
  - Upper limb fracture [Unknown]
  - Elbow operation [Unknown]
  - Anxiety [Unknown]
  - Hypertension [Unknown]
  - Necrosis [Unknown]
  - Fall [Unknown]
  - Hyperlipidaemia [Unknown]
  - Bone lesion [Unknown]
  - Knee operation [Unknown]
  - Foot operation [Unknown]
  - Wrist surgery [Unknown]
  - Tonsillectomy [Unknown]
  - Mitral valve prolapse [Unknown]
  - Myomectomy [Unknown]
  - Uterine leiomyoma [Unknown]
  - Depression [Unknown]
  - Cyst [Unknown]
  - Cyst removal [Unknown]
  - Uterine dilation and curettage [Unknown]
  - Lipoma [Unknown]
  - Lipoma excision [Unknown]
  - Osteochondrosis [Unknown]
  - Bursal fluid accumulation [Unknown]
